FAERS Safety Report 23507450 (Version 3)
Quarter: 2024Q3

REPORT INFORMATION
  Report Type: Spontaneous
  Country: US (occurrence: US)
  Receive Date: 20240209
  Receipt Date: 20240905
  Transmission Date: 20241016
  Serious: No
  Sender: SANOFI AVENTIS
  Company Number: US-SA-SAC20240201001444

PATIENT
  Age: 1 Year
  Sex: Male

DRUGS (1)
  1. DUPIXENT [Suspect]
     Active Substance: DUPILUMAB
     Indication: Eczema
     Dosage: 200 MG, Q4W
     Route: 058
     Dates: start: 20230814

REACTIONS (13)
  - Cough [Recovered/Resolved]
  - Nasal congestion [Recovered/Resolved]
  - Pyrexia [Recovered/Resolved]
  - Influenza [Unknown]
  - Urticaria [Unknown]
  - Pruritus [Unknown]
  - Feeling abnormal [Unknown]
  - Eczema [Unknown]
  - Erythema [Unknown]
  - Rash [Unknown]
  - Inappropriate schedule of product administration [Unknown]
  - Sleep disorder due to general medical condition, insomnia type [Unknown]
  - Illness [Unknown]

NARRATIVE: CASE EVENT DATE: 20231201
